FAERS Safety Report 25583900 (Version 2)
Quarter: 2025Q3

REPORT INFORMATION
  Report Type: Spontaneous
  Country: JP (occurrence: JP)
  Receive Date: 20250721
  Receipt Date: 20250811
  Transmission Date: 20251020
  Serious: Yes (Hospitalization, Other)
  Sender: AMGEN
  Company Number: JP-KYOWAKIRIN-2025KK013600

PATIENT
  Sex: Female

DRUGS (4)
  1. PEGFILGRASTIM [Suspect]
     Active Substance: PEGFILGRASTIM
     Indication: Product used for unknown indication
     Route: 058
     Dates: start: 20250703, end: 20250703
  2. DOXORUBICIN HYDROCHLORIDE [Suspect]
     Active Substance: DOXORUBICIN HYDROCHLORIDE
     Indication: Product used for unknown indication
     Route: 065
     Dates: start: 20250702, end: 20250702
  3. CYCLOPHOSPHAMIDE [Suspect]
     Active Substance: CYCLOPHOSPHAMIDE
     Indication: Product used for unknown indication
     Route: 065
     Dates: start: 20250702, end: 20250702
  4. KEYTRUDA [Suspect]
     Active Substance: PEMBROLIZUMAB
     Indication: Product used for unknown indication
     Route: 065
     Dates: start: 20250702, end: 20250702

REACTIONS (2)
  - Febrile neutropenia [Recovered/Resolved]
  - Colony stimulating factor therapy [Unknown]

NARRATIVE: CASE EVENT DATE: 20250709
